FAERS Safety Report 10436178 (Version 1)
Quarter: 2014Q3

REPORT INFORMATION
  Report Type: Spontaneous
  Country: US (occurrence: None)
  Receive Date: 20140905
  Receipt Date: 20140905
  Transmission Date: 20150326
  Serious: Yes (Life-Threatening, Hospitalization, Other)
  Sender: FDA-Public Use
  Company Number: None

PATIENT
  Age: 78 Year
  Weight: 100 kg

DRUGS (12)
  1. INSULIN LISPRO [Concomitant]
     Active Substance: INSULIN LISPRO
  2. CARVEDILOL. [Concomitant]
     Active Substance: CARVEDILOL
  3. GEMFIBROZIL. [Concomitant]
     Active Substance: GEMFIBROZIL
  4. PRAVASTATIN [Concomitant]
     Active Substance: PRAVASTATIN\PRAVASTATIN SODIUM
  5. WARFARIN [Suspect]
     Active Substance: WARFARIN
  6. LANTUS [Concomitant]
     Active Substance: INSULIN GLARGINE
  7. VITAMIN D3 [Concomitant]
     Active Substance: CHOLECALCIFEROL
  8. FUROSEMIDE. [Concomitant]
     Active Substance: FUROSEMIDE
  9. LISINOPRIL. [Concomitant]
     Active Substance: LISINOPRIL
  10. POTASSIUM CHLORIDE. [Concomitant]
     Active Substance: POTASSIUM CHLORIDE
  11. CALCIUM [Concomitant]
     Active Substance: CALCIUM
  12. VITMAIN D [Concomitant]

REACTIONS (3)
  - Drug dose omission [None]
  - Extra dose administered [None]
  - Subdural haematoma [None]

NARRATIVE: CASE EVENT DATE: 20140904
